FAERS Safety Report 16871621 (Version 1)
Quarter: 2019Q4

REPORT INFORMATION
  Report Type: Spontaneous
  Country: RO (occurrence: RO)
  Receive Date: 20191001
  Receipt Date: 20191001
  Transmission Date: 20200122
  Serious: Yes (Death, Other)
  Sender: FDA-Public Use
  Company Number: RO-ROCHE-2412610

PATIENT
  Age: 1 Year
  Sex: Female
  Weight: 8.5 kg

DRUGS (12)
  1. MYOZYME [Suspect]
     Active Substance: ALGLUCOSIDASE ALFA
     Route: 065
     Dates: start: 20190727
  2. MYOZYME [Suspect]
     Active Substance: ALGLUCOSIDASE ALFA
     Route: 041
     Dates: start: 20190807
  3. DEXAMETHASONE. [Concomitant]
     Active Substance: DEXAMETHASONE
     Route: 065
     Dates: start: 20190727
  4. CAPTOPRIL. [Concomitant]
     Active Substance: CAPTOPRIL
     Dosage: UNK UNK, UNK
     Route: 065
     Dates: start: 20190727
  5. MYOZYME [Suspect]
     Active Substance: ALGLUCOSIDASE ALFA
     Route: 042
     Dates: start: 201809, end: 20190807
  6. METHOTREXATE. [Suspect]
     Active Substance: METHOTREXATE
     Indication: PRODUCT USED FOR UNKNOWN INDICATION
     Route: 065
  7. SPIRONOLACTONE. [Concomitant]
     Active Substance: SPIRONOLACTONE
     Route: 065
     Dates: start: 20190727
  8. BORTEZOMIB. [Concomitant]
     Active Substance: BORTEZOMIB
     Route: 065
  9. AERIUS (DESLORATADINE) [Concomitant]
     Active Substance: DESLORATADINE
     Route: 065
     Dates: start: 20190727
  10. RITUXIMAB. [Suspect]
     Active Substance: RITUXIMAB
     Indication: PRODUCT USED FOR UNKNOWN INDICATION
     Route: 065
  11. MYOZYME [Suspect]
     Active Substance: ALGLUCOSIDASE ALFA
     Indication: GLYCOGEN STORAGE DISEASE TYPE II
     Route: 041
     Dates: start: 2019
  12. FUROSEMIDE. [Concomitant]
     Active Substance: FUROSEMIDE
     Dosage: UNK UNK, UNK
     Route: 065
     Dates: start: 20190727

REACTIONS (18)
  - Respiratory rate increased [Fatal]
  - Hypopnoea [Fatal]
  - Blood immunoglobulin A decreased [Unknown]
  - Blood pressure increased [Fatal]
  - Chronic respiratory failure [Fatal]
  - Metabolic acidosis [Fatal]
  - Respiratory acidosis [Fatal]
  - Disease progression [Fatal]
  - Oedema peripheral [Unknown]
  - Peripheral coldness [Fatal]
  - Cardiac murmur [Fatal]
  - Heart rate increased [Fatal]
  - Hypotonia [Fatal]
  - Hypogammaglobulinaemia [Unknown]
  - Cardio-respiratory arrest [Fatal]
  - Pyrexia [Fatal]
  - Cyanosis [Fatal]
  - Hyperthermia malignant [Fatal]

NARRATIVE: CASE EVENT DATE: 2019
